FAERS Safety Report 6734265-8 (Version None)
Quarter: 2010Q2

REPORT INFORMATION
  Report Type: 
  Country: None (occurrence: None)
  Receive Date: 20100520
  Receipt Date: 20100518
  Transmission Date: 20101027
  Serious: Yes (Death)
  Sender: FDA-Public Use
  Company Number: US-CELGENEUS-163-20785-10040982

PATIENT
  Sex: Female

DRUGS (2)
  1. THALOMID [Suspect]
     Indication: MULTIPLE MYELOMA
     Route: 048
     Dates: start: 20100122, end: 20100301
  2. THALOMID [Suspect]
     Route: 048
     Dates: start: 20100401, end: 20100401

REACTIONS (3)
  - MULTIPLE MYELOMA [None]
  - RENAL FAILURE [None]
  - RESPIRATORY FAILURE [None]
